FAERS Safety Report 25807422 (Version 2)
Quarter: 2025Q4

REPORT INFORMATION
  Report Type: Report from Study
  Country: US (occurrence: US)
  Receive Date: 20250916
  Receipt Date: 20251010
  Transmission Date: 20260118
  Serious: No
  Sender: ABBVIE
  Company Number: US-ABBVIE-6457813

PATIENT
  Age: 59 Year
  Sex: Male
  Weight: 79.378 kg

DRUGS (3)
  1. HUMIRA [Suspect]
     Active Substance: ADALIMUMAB
     Indication: Arthritis
     Dosage: FORM STRENGTH: 40 MILLIGRAM LAST ADMIN DATE:2025
     Route: 058
     Dates: start: 202507
  2. HUMIRA [Suspect]
     Active Substance: ADALIMUMAB
     Indication: Joint swelling
     Route: 058
     Dates: start: 2025
  3. NAPROXEN SODIUM [Concomitant]
     Active Substance: NAPROXEN SODIUM
     Indication: Arthritis
     Dosage: FREQUENCY TEXT: AS NEEDED

REACTIONS (5)
  - Vision blurred [Not Recovered/Not Resolved]
  - Polyarthritis [Recovering/Resolving]
  - Carpal tunnel syndrome [Recovering/Resolving]
  - Red cell distribution width increased [Not Recovered/Not Resolved]
  - Arthritis [Unknown]

NARRATIVE: CASE EVENT DATE: 20250101
